FAERS Safety Report 21743672 (Version 2)
Quarter: 2023Q1

REPORT INFORMATION
  Report Type: Report from Study
  Country: US (occurrence: US)
  Receive Date: 20221217
  Receipt Date: 20230106
  Transmission Date: 20230417
  Serious: No
  Sender: FDA-Public Use
  Company Number: US-ABBVIE-4240076

PATIENT
  Sex: Male

DRUGS (1)
  1. IMBRUVICA [Suspect]
     Active Substance: IBRUTINIB
     Indication: Chronic lymphocytic leukaemia
     Route: 048
     Dates: start: 20150901

REACTIONS (4)
  - Laboratory test abnormal [Unknown]
  - Pneumonia [Recovered/Resolved]
  - Blood immunoglobulin D decreased [Unknown]
  - Pneumonia [Unknown]

NARRATIVE: CASE EVENT DATE: 20220101
